FAERS Safety Report 22224928 (Version 2)
Quarter: 2023Q2

REPORT INFORMATION
  Report Type: Spontaneous
  Country: BG (occurrence: BG)
  Receive Date: 20230418
  Receipt Date: 20230504
  Transmission Date: 20230721
  Serious: Yes (Hospitalization)
  Sender: FDA-Public Use
  Company Number: BG-TEVA-2023-BG-2877836

PATIENT
  Age: 74 Year
  Sex: Male

DRUGS (4)
  1. ASPIRIN [Suspect]
     Active Substance: ASPIRIN
     Indication: Antiplatelet therapy
     Route: 065
  2. CLOPIDOGREL [Suspect]
     Active Substance: CLOPIDOGREL BISULFATE
     Indication: Antiplatelet therapy
     Route: 065
  3. ACENOCOUMAROL [Suspect]
     Active Substance: ACENOCOUMAROL
     Indication: Anticoagulant therapy
     Route: 065
  4. HEPARIN [Suspect]
     Active Substance: HEPARIN SODIUM
     Indication: Anticoagulant therapy
     Route: 042

REACTIONS (1)
  - Retroperitoneal haematoma [Recovered/Resolved]
